FAERS Safety Report 13619476 (Version 2)
Quarter: 2017Q2

REPORT INFORMATION
  Report Type: Spontaneous
  Country: US (occurrence: US)
  Receive Date: 20170606
  Receipt Date: 20170607
  Transmission Date: 20170830
  Serious: No
  Sender: FDA-Public Use
  Company Number: US-PURDUE-USA-2016-0132432

PATIENT
  Sex: Female

DRUGS (1)
  1. BUTRANS [Suspect]
     Active Substance: BUPRENORPHINE
     Indication: PAIN
     Dosage: 15 MCG/HR, WEEKLY
     Route: 062
     Dates: start: 201607

REACTIONS (16)
  - Drug withdrawal syndrome [Unknown]
  - Chills [Unknown]
  - Burning sensation [Not Recovered/Not Resolved]
  - Thermal burn [Unknown]
  - Abdominal pain [Unknown]
  - Product odour abnormal [Unknown]
  - Feeling hot [Unknown]
  - Product quality issue [Unknown]
  - Fatigue [Unknown]
  - Erythema [Not Recovered/Not Resolved]
  - Drug effect increased [Unknown]
  - Pain [Unknown]
  - Wrong technique in product usage process [Unknown]
  - Diplopia [Unknown]
  - Drug ineffective [Unknown]
  - Hyperhidrosis [Unknown]
